FAERS Safety Report 12482355 (Version 1)
Quarter: 2016Q2

REPORT INFORMATION
  Report Type: Spontaneous
  Country: US (occurrence: US)
  Receive Date: 20160620
  Receipt Date: 20160620
  Transmission Date: 20160815
  Serious: No
  Sender: FDA-Public Use
  Company Number: US-MISSION PHARMACAL COMPANY-1054072

PATIENT
  Age: 47 Year
  Sex: Male

DRUGS (3)
  1. PAIN MED BUT NOT SPECIFIED [Concomitant]
  2. THIOLA [Suspect]
     Active Substance: TIOPRONIN
     Indication: NEPHROLITHIASIS
     Route: 065
     Dates: start: 20150828
  3. VALIUM [Concomitant]
     Active Substance: DIAZEPAM
     Route: 065

REACTIONS (2)
  - Nephrolithiasis [Unknown]
  - Insomnia [Not Recovered/Not Resolved]
